FAERS Safety Report 8241408-6 (Version None)
Quarter: 2012Q1

REPORT INFORMATION
  Report Type: 
  Country: None (occurrence: None)
  Receive Date: 20120328
  Receipt Date: 20120322
  Transmission Date: 20120608
  Serious: Yes (Death)
  Sender: FDA-Public Use
  Company Number: US-ALEXION PHARMACEUTICALS INC.-A201200493

PATIENT
  Age: 14 Year
  Sex: Female

DRUGS (3)
  1. SOLIRIS [Suspect]
     Indication: THROMBOTIC THROMBOCYTOPENIC PURPURA
     Dosage: 900 MG, SINGLE
     Route: 042
     Dates: start: 20120309, end: 20120309
  2. ANTIBIOTICS [Concomitant]
     Indication: PROPHYLAXIS
  3. SOLIRIS [Suspect]
     Dosage: 600 UNK, QD
     Route: 042
     Dates: start: 20120310, end: 20120314

REACTIONS (2)
  - MYOCARDIAL INFARCTION [None]
  - CARDIAC ARREST [None]
